FAERS Safety Report 9063905 (Version 1)
Quarter: 2013Q1

REPORT INFORMATION
  Report Type: Report from Study
  Country: US (occurrence: US)
  Receive Date: 20130131
  Receipt Date: 20130131
  Transmission Date: 20140127
  Serious: Yes (Other)
  Sender: FDA-Public Use
  Company Number: US-ABBOTT-12P-163-1017493-00

PATIENT
  Sex: Male

DRUGS (1)
  1. HUMIRA [Suspect]
     Indication: RHEUMATOID ARTHRITIS
     Route: 058
     Dates: start: 20120518

REACTIONS (7)
  - Rotator cuff repair [Unknown]
  - Drug dose omission [Unknown]
  - Paraesthesia [Unknown]
  - Skin induration [Unknown]
  - Drug ineffective [Unknown]
  - Drug dose omission [Unknown]
  - Drug dose omission [Unknown]
